FAERS Safety Report 13819252 (Version 1)
Quarter: 2017Q3

REPORT INFORMATION
  Report Type: Report from Study
  Country: US (occurrence: US)
  Receive Date: 20170731
  Receipt Date: 20170731
  Transmission Date: 20171127
  Serious: No
  Sender: FDA-Public Use
  Company Number: US-EXELIXIS-CABO-17008622

PATIENT
  Age: 61 Year
  Sex: Male

DRUGS (16)
  1. PROBIOTIC [Concomitant]
     Active Substance: PROBIOTICS NOS
  2. NORCO [Concomitant]
     Active Substance: ACETAMINOPHEN\HYDROCODONE BITARTRATE
  3. METOPROLOL. [Concomitant]
     Active Substance: METOPROLOL
  4. ZINC. [Concomitant]
     Active Substance: ZINC
  5. LOPRESSOR [Concomitant]
     Active Substance: METOPROLOL TARTRATE
  6. TURMERIC [Concomitant]
     Active Substance: HERBALS\TURMERIC
  7. FISH OIL [Concomitant]
     Active Substance: FISH OIL
  8. VITAMIN B12 [Concomitant]
     Active Substance: CYANOCOBALAMIN
  9. FLAXSEED [Concomitant]
     Active Substance: FLAX SEED
  10. FENOFIBRATE. [Concomitant]
     Active Substance: FENOFIBRATE
  11. ELIQUIS [Concomitant]
     Active Substance: APIXABAN
  12. CALCIUM [Concomitant]
     Active Substance: CALCIUM
  13. IODINE. [Concomitant]
     Active Substance: IODINE
  14. CABOMETYX [Suspect]
     Active Substance: CABOZANTINIB S-MALATE
     Indication: RENAL CELL CARCINOMA
     Dosage: 60 MG, QD
     Route: 048
     Dates: start: 20170218, end: 20170317
  15. MAG-OX [Concomitant]
     Active Substance: MAGNESIUM OXIDE
  16. COPPER [Concomitant]
     Active Substance: COPPER

REACTIONS (5)
  - Renal pain [Unknown]
  - Pain [Not Recovered/Not Resolved]
  - Abdominal pain [Unknown]
  - Back pain [Unknown]
  - Musculoskeletal pain [Unknown]

NARRATIVE: CASE EVENT DATE: 20170317
